FAERS Safety Report 6480429-0 (Version None)
Quarter: 2009Q4

REPORT INFORMATION
  Report Type: 
  Country: None (occurrence: None)
  Receive Date: 20091208
  Receipt Date: 20091125
  Transmission Date: 20100525
  Serious: Yes (Hospitalization)
  Sender: FDA-Public Use
  Company Number: FR-PFIZER INC-2009167003

PATIENT
  Age: 71 Year
  Sex: Male

DRUGS (3)
  1. BLINDED *NO SUBJECT DRUG [Suspect]
     Indication: CARDIAC FAILURE
     Dosage: UNK MG, 1X/DAY
     Route: 048
     Dates: start: 20061212, end: 20081203
  2. BLINDED *PLACEBO [Suspect]
     Indication: CARDIAC FAILURE
     Dosage: UNK MG, 1X/DAY
     Route: 048
     Dates: start: 20061212, end: 20081203
  3. BLINDED EPLERENONE [Suspect]
     Indication: CARDIAC FAILURE
     Dosage: UNK MG, 1X/DAY
     Route: 048
     Dates: start: 20061212, end: 20081203

REACTIONS (3)
  - CONDITION AGGRAVATED [None]
  - HYPERKALAEMIA [None]
  - RENAL FAILURE CHRONIC [None]
